FAERS Safety Report 15558570 (Version 1)
Quarter: 2018Q4

REPORT INFORMATION
  Report Type: Spontaneous
  Country: US (occurrence: US)
  Receive Date: 20181028
  Receipt Date: 20181028
  Transmission Date: 20190205
  Serious: Yes (Death)
  Sender: FDA-Public Use
  Company Number: PHHY2018US136305

PATIENT
  Age: 50 Year
  Sex: Male

DRUGS (2)
  1. QUINIDINE [Suspect]
     Active Substance: QUINIDINE
     Indication: MALARIA
     Dosage: UNK
     Route: 065
  2. DOXYCYCLINE. [Suspect]
     Active Substance: DOXYCYCLINE
     Indication: MALARIA
     Dosage: UNK
     Route: 065

REACTIONS (8)
  - Ventricular arrhythmia [Fatal]
  - Electrocardiogram QT prolonged [Fatal]
  - Multiple organ dysfunction syndrome [Fatal]
  - Peripheral ischaemia [Fatal]
  - Shock [Fatal]
  - Renal failure [Fatal]
  - Metabolic acidosis [Fatal]
  - Liver disorder [Fatal]
